FAERS Safety Report 7006687-1 (Version None)
Quarter: 2010Q3

REPORT INFORMATION
  Report Type: 
  Country: None (occurrence: None)
  Receive Date: 20100921
  Receipt Date: 20100917
  Transmission Date: 20110219
  Serious: Yes (Life-Threatening, Hospitalization)
  Sender: FDA-Public Use
  Company Number: FR-BRISTOL-MYERS SQUIBB COMPANY-15292816

PATIENT
  Age: 57 Year
  Sex: Male

DRUGS (8)
  1. APROVEL TABS 300 MG [Suspect]
     Route: 048
     Dates: end: 20100504
  2. TAHOR [Concomitant]
  3. ALDACTONE [Concomitant]
  4. BISOPROLOL FUMARATE [Concomitant]
  5. PLAVIX [Concomitant]
  6. LASIX [Concomitant]
  7. NITRODERM [Concomitant]
  8. INSULIN [Concomitant]
     Dosage: PUMP

REACTIONS (3)
  - ANAPHYLACTIC SHOCK [None]
  - LACTIC ACIDOSIS [None]
  - RENAL FAILURE [None]
